FAERS Safety Report 5288957-0 (Version None)
Quarter: 2007Q2

REPORT INFORMATION
  Report Type: 
  Country: None (occurrence: None)
  Receive Date: 20070405
  Receipt Date: 20070326
  Transmission Date: 20071010
  Serious: Yes (Hospitalization, Other)
  Sender: FDA-Public Use
  Company Number: AU-PFIZER INC-2007013643

PATIENT
  Sex: Female
  Weight: 94 kg

DRUGS (11)
  1. SILDENAFIL (PAH) [Suspect]
     Indication: PULMONARY HYPERTENSION
     Route: 048
  2. EPOPROSTENOL SODIUM [Concomitant]
  3. PANTOPRAZOLE [Concomitant]
  4. BURINEX [Concomitant]
  5. ALDACTONE [Concomitant]
  6. SPAN-K [Concomitant]
  7. WARFARIN SODIUM [Concomitant]
  8. SERTRALINE [Concomitant]
  9. PANTOPRAZOLE SODIUM [Concomitant]
     Route: 048
  10. WARFARIN SODIUM [Concomitant]
     Route: 048
  11. LEVOTHYROXINE SODIUM [Concomitant]
     Route: 048

REACTIONS (2)
  - CATHETER PLACEMENT [None]
  - PULMONARY HYPERTENSION [None]
